FAERS Safety Report 7716715-3 (Version None)
Quarter: 2011Q3

REPORT INFORMATION
  Report Type: 
  Country: None (occurrence: None)
  Receive Date: 20110829
  Receipt Date: 20110816
  Transmission Date: 20111222
  Serious: No
  Sender: FDA-Public Use
  Company Number: US-B.I. PHARMACEUTICALS,INC./RIDGEFIELD-2011-BP-17029BP

PATIENT
  Sex: Female

DRUGS (6)
  1. METOPROLOL TARTRATE [Concomitant]
     Indication: HYPERTENSION
     Route: 048
  2. DIOVAN [Concomitant]
     Indication: HYPERTENSION
     Route: 048
  3. PRADAXA [Suspect]
     Indication: ATRIAL FIBRILLATION
     Dosage: 300 MG
     Route: 048
     Dates: start: 20110617
  4. GLUCOSAMINE/CONDROITIN [Concomitant]
     Indication: SUPPLEMENTATION THERAPY
     Route: 048
  5. CALCIUM CARBONATE [Concomitant]
     Indication: SUPPLEMENTATION THERAPY
     Route: 048
  6. BIOTIN [Concomitant]
     Indication: SUPPLEMENTATION THERAPY
     Route: 048

REACTIONS (3)
  - THROAT IRRITATION [None]
  - DYSPEPSIA [None]
  - FLATULENCE [None]
